FAERS Safety Report 16675383 (Version 1)
Quarter: 2019Q3

REPORT INFORMATION
  Report Type: Spontaneous
  Country: None (occurrence: US)
  Receive Date: 20190806
  Receipt Date: 20190806
  Transmission Date: 20191004
  Serious: No
  Sender: FDA-Public Use
  Company Number: US-MISSION PHARMACAL COMPANY-2072816

PATIENT
  Age: 39 Year
  Sex: Male

DRUGS (1)
  1. LITHOSTAT [Suspect]
     Active Substance: ACETOHYDROXAMIC ACID
     Indication: DEVICE OCCLUSION
     Route: 048
     Dates: start: 20190719, end: 20190723

REACTIONS (4)
  - Screaming [Recovered/Resolved]
  - Hyperhidrosis [Recovered/Resolved]
  - Abdominal pain upper [Recovered/Resolved]
  - Crying [Recovered/Resolved]
